FAERS Safety Report 9129326 (Version 2)
Quarter: 2013Q1

REPORT INFORMATION
  Report Type: Spontaneous
  Country: US (occurrence: US)
  Receive Date: 20130125
  Receipt Date: 20130305
  Transmission Date: 20140127
  Serious: No
  Sender: FDA-Public Use
  Company Number: US-B.I. PHARMACEUTICALS,INC./RIDGEFIELD-2013-BI-01851BP

PATIENT
  Sex: Female
  Weight: 92 kg

DRUGS (3)
  1. SPIRIVA [Suspect]
     Indication: CHRONIC OBSTRUCTIVE PULMONARY DISEASE
     Dosage: 18 MCG
     Route: 048
     Dates: start: 201209
  2. MOTRIN [Concomitant]
     Dosage: 1600 MG
     Route: 048
  3. SYMBICORT [Concomitant]
     Route: 055

REACTIONS (6)
  - Dyspnoea [Recovered/Resolved]
  - Nasopharyngitis [Not Recovered/Not Resolved]
  - Cough [Not Recovered/Not Resolved]
  - Rhinorrhoea [Not Recovered/Not Resolved]
  - Vomiting [Recovered/Resolved]
  - Product quality issue [Recovered/Resolved]
